FAERS Safety Report 20771259 (Version 1)
Quarter: 2022Q2

REPORT INFORMATION
  Report Type: Spontaneous
  Country: DE (occurrence: DE)
  Receive Date: 20220429
  Receipt Date: 20220429
  Transmission Date: 20220720
  Serious: Yes (Hospitalization, Other)
  Sender: FDA-Public Use
  Company Number: DE-NOVARTISPH-NVSC2022DE095994

PATIENT
  Age: 22 Year
  Sex: Female

DRUGS (1)
  1. DABRAFENIB [Suspect]
     Active Substance: DABRAFENIB
     Indication: Metastases to skin
     Dosage: UNK
     Route: 065
     Dates: start: 20170810

REACTIONS (12)
  - Hypophysitis [Unknown]
  - Cholangitis [Unknown]
  - Myocarditis [Unknown]
  - Pneumonitis [Unknown]
  - Renal failure [Unknown]
  - Hepatic failure [Unknown]
  - Disseminated intravascular coagulation [Unknown]
  - Hypoglycaemia [Unknown]
  - Rash [Unknown]
  - Nausea [Unknown]
  - Erythema [Unknown]
  - Hypotension [Unknown]

NARRATIVE: CASE EVENT DATE: 20170815
